FAERS Safety Report 16488958 (Version 1)
Quarter: 2019Q2

REPORT INFORMATION
  Report Type: Spontaneous
  Country: US (occurrence: US)
  Receive Date: 20190628
  Receipt Date: 20190628
  Transmission Date: 20190711
  Serious: No
  Sender: FDA-Public Use
  Company Number: US-SHIRE-US201920970

PATIENT
  Sex: Female

DRUGS (2)
  1. XIIDRA [Suspect]
     Active Substance: LIFITEGRAST
     Indication: EYE IRRITATION
  2. XIIDRA [Suspect]
     Active Substance: LIFITEGRAST
     Indication: EYE INFLAMMATION
     Dosage: 1 GTT DROPS, 2X/DAY:BID
     Route: 047

REACTIONS (2)
  - Taste disorder [Unknown]
  - Off label use [Unknown]
